FAERS Safety Report 13666351 (Version 1)
Quarter: 2017Q2

REPORT INFORMATION
  Report Type: Spontaneous
  Country: US (occurrence: US)
  Receive Date: 20170619
  Receipt Date: 20170619
  Transmission Date: 20170830
  Serious: No
  Sender: FDA-Public Use
  Company Number: US-ROCHE-541995

PATIENT
  Age: 77 Year
  Sex: Female

DRUGS (6)
  1. XELODA [Suspect]
     Active Substance: CAPECITABINE
     Indication: BREAST CANCER METASTATIC
     Dosage: 2 500 MG TAB AND 2 150 MG TAB TWICE DAILY 2 WEEKS ON AND ONE WEEK OFF, OTHER INDICATION: BONE CANCER
     Route: 048
  2. VITAMIN [Concomitant]
     Active Substance: VITAMINS
     Route: 065
  3. PROPRANOLOL [Concomitant]
     Active Substance: PROPRANOLOL HYDROCHLORIDE
     Route: 065
  4. XELODA [Suspect]
     Active Substance: CAPECITABINE
     Route: 048
  5. XANAX [Concomitant]
     Active Substance: ALPRAZOLAM
     Route: 065
  6. LEXAPRO [Concomitant]
     Active Substance: ESCITALOPRAM OXALATE
     Dosage: TAKEN AT BEDTIME
     Route: 065

REACTIONS (12)
  - Alopecia [Unknown]
  - Skin ulcer [Unknown]
  - Weight decreased [Unknown]
  - Skin exfoliation [Unknown]
  - Eye irritation [Unknown]
  - Onychomadesis [Unknown]
  - Ocular hyperaemia [Not Recovered/Not Resolved]
  - Decreased appetite [Unknown]
  - Fatigue [Not Recovered/Not Resolved]
  - Food craving [Recovered/Resolved]
  - Neuropathy peripheral [Unknown]
  - Tremor [Not Recovered/Not Resolved]
